FAERS Safety Report 18266048 (Version 1)
Quarter: 2020Q3

REPORT INFORMATION
  Report Type: Spontaneous
  Country: CA (occurrence: CA)
  Receive Date: 20200915
  Receipt Date: 20200915
  Transmission Date: 20201103
  Serious: Yes (Other)
  Sender: FDA-Public Use
  Company Number: CA-ABBVIE-20K-028-3559982-00

PATIENT
  Sex: Female

DRUGS (3)
  1. DOXY [Concomitant]
     Active Substance: DOXYCYCLINE
     Indication: PRODUCT USED FOR UNKNOWN INDICATION
  2. ALDACTONE [Concomitant]
     Active Substance: SPIRONOLACTONE
     Indication: PRODUCT USED FOR UNKNOWN INDICATION
  3. HUMIRA [Suspect]
     Active Substance: ADALIMUMAB
     Indication: HIDRADENITIS
     Route: 058
     Dates: start: 2020, end: 2020

REACTIONS (15)
  - Drug-induced liver injury [Unknown]
  - Cytomegalovirus infection reactivation [Unknown]
  - Dermatitis [Unknown]
  - Granuloma [Unknown]
  - Hepatic steatosis [Unknown]
  - Vomiting [Unknown]
  - Retching [Unknown]
  - Liver disorder [Unknown]
  - Autoimmune disorder [Unknown]
  - Jaundice [Unknown]
  - Papule [Unknown]
  - Biliary tract disorder [Unknown]
  - Cytomegalovirus hepatitis [Unknown]
  - Hepatitis [Unknown]
  - Blood glucose abnormal [Unknown]

NARRATIVE: CASE EVENT DATE: 2020
